FAERS Safety Report 4979368-3 (Version None)
Quarter: 2006Q2

REPORT INFORMATION
  Report Type: 
  Country: None (occurrence: None)
  Receive Date: 20060421
  Receipt Date: 20051121
  Transmission Date: 20061013
  Serious: Yes (Death, Hospitalization, Disabling)
  Sender: FDA-Public Use
  Company Number: US-MERCK-0511USA03622

PATIENT
  Age: 66 Year
  Sex: Male
  Weight: 98 kg

DRUGS (4)
  1. VIOXX [Suspect]
     Indication: SPONDYLITIS
     Route: 048
     Dates: start: 20020501, end: 20031101
  2. LASIX [Concomitant]
     Route: 065
  3. NIFEDIPINE [Concomitant]
     Route: 065
  4. SPIRONOLACTONE [Concomitant]
     Route: 065

REACTIONS (16)
  - CARDIAC FAILURE CONGESTIVE [None]
  - CARDIOVASCULAR DISORDER [None]
  - CEREBROVASCULAR ACCIDENT [None]
  - DEATH [None]
  - DIABETES MELLITUS [None]
  - HYPERTENSION [None]
  - INJURY [None]
  - IRON DEFICIENCY ANAEMIA [None]
  - OBESITY [None]
  - PLEURAL EFFUSION [None]
  - PNEUMONIA [None]
  - RESPIRATORY FAILURE [None]
  - RHABDOMYOLYSIS [None]
  - SKIN ULCER [None]
  - SPINAL CORD INJURY CERVICAL [None]
  - VENTRICULAR HYPERTROPHY [None]
